FAERS Safety Report 16483680 (Version 1)
Quarter: 2019Q2

REPORT INFORMATION
  Report Type: Report from Study
  Country: FR (occurrence: FR)
  Receive Date: 20190627
  Receipt Date: 20190627
  Transmission Date: 20190711
  Serious: Yes (Hospitalization, Other)
  Sender: FDA-Public Use
  Company Number: FR-PFIZER INC-2019268024

PATIENT
  Age: 2 Year
  Sex: Male
  Weight: 10 kg

DRUGS (4)
  1. VENETOCLAX. [Suspect]
     Active Substance: VENETOCLAX
     Indication: NEOPLASM MALIGNANT
     Dosage: 40 MG, 1 IN 1 D
     Route: 048
     Dates: start: 20190520, end: 20190520
  2. VENETOCLAX. [Suspect]
     Active Substance: VENETOCLAX
     Dosage: 150 MG, 1 IN 1 D
     Route: 048
     Dates: start: 20190522, end: 20190610
  3. CYTARABINE. [Suspect]
     Active Substance: CYTARABINE
     Indication: NEOPLASM MALIGNANT
     Dosage: 20 MG/M2, 2 IN 1 D
     Route: 042
     Dates: start: 20190513, end: 20190526
  4. VENETOCLAX. [Suspect]
     Active Substance: VENETOCLAX
     Dosage: 80 MG, 1 IN 1 D
     Route: 048
     Dates: start: 20190521, end: 20190521

REACTIONS (4)
  - Neoplasm progression [Not Recovered/Not Resolved]
  - Vomiting [Not Recovered/Not Resolved]
  - Pyrexia [Not Recovered/Not Resolved]
  - Pain [Not Recovered/Not Resolved]

NARRATIVE: CASE EVENT DATE: 20190610
